FAERS Safety Report 14580227 (Version 4)
Quarter: 2018Q1

REPORT INFORMATION
  Report Type: Report from Study
  Country: None (occurrence: TR)
  Receive Date: 20180228
  Receipt Date: 20180305
  Transmission Date: 20180509
  Serious: Yes (Death, Hospitalization)
  Sender: FDA-Public Use
  Company Number: TR-ABBVIE-18K-161-2267643-00

PATIENT
  Age: 78 Year
  Sex: Female
  Weight: 65 kg

DRUGS (10)
  1. DUODOPA [Suspect]
     Active Substance: CARBIDOPA\LEVODOPA
     Indication: PARKINSON^S DISEASE
     Dosage: MORNING: 4.5 ML??CONTINOUS: 2.7 ML??EXTRA: 1.0 ML
     Route: 050
     Dates: start: 20180221
  2. EXELON PATCH [Concomitant]
     Active Substance: RIVASTIGMINE
     Indication: DEMENTIA
     Dosage: 15 PATCH
     Route: 062
     Dates: start: 2012
  3. EBIXA [Concomitant]
     Active Substance: MEMANTINE HYDROCHLORIDE
     Indication: DEMENTIA
     Dosage: VIA ENTERAL
     Dates: start: 2014
  4. ENEAS [Concomitant]
     Active Substance: ENALAPRIL MALEATE\NITRENDIPINE
     Indication: HYPERTENSION
     Dosage: VIA ENTERAL
  5. BETANORM [Concomitant]
     Indication: DIABETES MELLITUS
     Dosage: VIA ENTERAL
  6. LEVOTIRON [Concomitant]
     Active Substance: LEVOTHYROXINE SODIUM
     Indication: GOITRE
     Dosage: VIA ENTERAL
  7. GLIFIX [Concomitant]
     Indication: DIABETES MELLITUS
     Dosage: VIA ENTERAL
  8. PANTO [Concomitant]
     Active Substance: PANTOPRAZOLE SODIUM
     Indication: PROPHYLAXIS
     Dosage: VIA ENTERAL
     Dates: start: 201708
  9. KEPPRA [Concomitant]
     Active Substance: LEVETIRACETAM
     Indication: PRODUCT USED FOR UNKNOWN INDICATION
     Dosage: VIA ENTERAL
     Dates: start: 201709
  10. BRONKOLIN RETARD [Concomitant]
     Indication: DYSPNOEA
     Dates: start: 201709

REACTIONS (7)
  - Pneumonia aspiration [Not Recovered/Not Resolved]
  - Cardiac arrest [Recovered/Resolved]
  - Renal impairment [Not Recovered/Not Resolved]
  - Blood count abnormal [Not Recovered/Not Resolved]
  - Hepatic function abnormal [Not Recovered/Not Resolved]
  - Oliguria [Not Recovered/Not Resolved]
  - Sepsis [Fatal]

NARRATIVE: CASE EVENT DATE: 201802
